FAERS Safety Report 8846924 (Version 1)
Quarter: 2012Q4

REPORT INFORMATION
  Report Type: Spontaneous
  Country: US (occurrence: None)
  Receive Date: 20121016
  Receipt Date: 20121016
  Transmission Date: 20130627
  Serious: Yes (Other)
  Sender: FDA-Public Use
  Company Number: AUR-APL-2012-04378

PATIENT
  Age: 70 Year
  Sex: Female

DRUGS (1)
  1. CLINDAMYCIN [Suspect]
     Indication: SKIN ERUPTION

REACTIONS (8)
  - Dermatitis [None]
  - Pyrexia [None]
  - Malaise [None]
  - Rash pustular [None]
  - Blister [None]
  - Neutrophilia [None]
  - Rash [None]
  - Dermatitis exfoliative [None]
